FAERS Safety Report 5387386-9 (Version None)
Quarter: 2007Q3

REPORT INFORMATION
  Report Type: 
  Country: None (occurrence: None)
  Receive Date: 20070703
  Receipt Date: 20070406
  Transmission Date: 20080115
  Serious: No
  Sender: FDA-Public Use
  Company Number: 2007PV032794

PATIENT
  Age: 22 Year
  Sex: Female

DRUGS (6)
  1. SYMLIN [Suspect]
     Indication: TYPE 1 DIABETES MELLITUS
     Dosage: 60 MCG;SC; SC
     Route: 058
     Dates: start: 20070209
  2. SYMLIN [Suspect]
     Indication: TYPE 1 DIABETES MELLITUS
     Dosage: 60 MCG;SC; SC
     Route: 058
     Dates: start: 20070316
  3. ACE INHIBITOR NOS [Concomitant]
  4. AVANDIA [Concomitant]
  5. HUMALOG [Concomitant]
  6. METFORMIN HCL [Concomitant]

REACTIONS (2)
  - ALOPECIA [None]
  - STRESS [None]
